FAERS Safety Report 9341298 (Version 1)
Quarter: 2013Q2

REPORT INFORMATION
  Report Type: Report from Study
  Country: US (occurrence: US)
  Receive Date: 20130611
  Receipt Date: 20130611
  Transmission Date: 20140414
  Serious: Yes (Hospitalization)
  Sender: FDA-Public Use
  Company Number: US-ROCHE-1203087

PATIENT
  Age: 64 Year
  Sex: Male

DRUGS (19)
  1. PEG-INTERFERON ALFA 2A [Suspect]
     Indication: CHRONIC HEPATITIS C
     Route: 058
     Dates: start: 20120831
  2. RIBAVIRIN [Suspect]
     Indication: CHRONIC HEPATITIS C
     Route: 048
     Dates: start: 20120831
  3. TELAPREVIR [Suspect]
     Indication: CHRONIC HEPATITIS C
     Route: 048
     Dates: start: 20120831, end: 20121025
  4. ALLOPURINOL [Concomitant]
     Route: 065
     Dates: start: 20120918, end: 20121023
  5. FLUOCINONIDE [Concomitant]
     Route: 065
     Dates: start: 20121018, end: 20121101
  6. CETIRIZINE HCL [Concomitant]
     Route: 065
     Dates: start: 20121023, end: 20121028
  7. PRAMOXINE [Concomitant]
     Route: 065
     Dates: start: 20121023, end: 20121028
  8. PREDNISONE [Concomitant]
     Dosage: 20MG/DAY
     Route: 065
     Dates: start: 20121027, end: 20130404
  9. OMEPRAZOLE [Concomitant]
     Route: 065
     Dates: start: 20120914, end: 20121023
  10. IMODIUM [Concomitant]
     Route: 065
     Dates: start: 20120904, end: 20121023
  11. AMBIEN [Concomitant]
     Route: 065
     Dates: start: 20120830, end: 20121023
  12. CITALOPRAM [Concomitant]
     Route: 065
     Dates: start: 20120203, end: 20121028
  13. CITALOPRAM [Concomitant]
     Route: 065
     Dates: start: 20121023
  14. BENAZEPRIL HCL [Concomitant]
     Route: 065
     Dates: start: 20111215, end: 20121023
  15. ACETAMINOPHEN [Concomitant]
  16. ACETAMINOPHEN W/CODEINE [Concomitant]
     Route: 065
     Dates: start: 20121029, end: 20121130
  17. LORAZEPAM [Concomitant]
     Route: 065
     Dates: start: 20121029
  18. PETROLATUM [Concomitant]
     Route: 065
     Dates: start: 20121029, end: 20121101
  19. SODIUM CHLORIDE [Concomitant]

REACTIONS (1)
  - Drug reaction with eosinophilia and systemic symptoms [Recovered/Resolved]
